FAERS Safety Report 13576534 (Version 2)
Quarter: 2017Q2

REPORT INFORMATION
  Report Type: Report from Study
  Country: FR (occurrence: FR)
  Receive Date: 20170524
  Receipt Date: 20170531
  Transmission Date: 20170830
  Serious: Yes (Death, Other)
  Sender: FDA-Public Use
  Company Number: FR-PFIZER INC-2017218363

PATIENT
  Age: 10 Day
  Sex: Male
  Weight: 4 kg

DRUGS (4)
  1. SANDIMMUN [Suspect]
     Active Substance: CYCLOSPORINE
     Indication: PREMEDICATION
     Dosage: UNK
     Route: 042
     Dates: start: 20161030, end: 20161030
  2. CAMPATH [Suspect]
     Active Substance: ALEMTUZUMAB
     Indication: LYMPHOHISTIOCYTOSIS
     Dosage: 0.5 MG/KG, CYCLIC
     Route: 042
     Dates: start: 20161030, end: 20161030
  3. SOLU-MEDROL [Suspect]
     Active Substance: METHYLPREDNISOLONE SODIUM SUCCINATE
     Indication: PREMEDICATION
     Dosage: UNK
     Route: 042
     Dates: start: 20161030, end: 20161030
  4. POLARAMINE [Suspect]
     Active Substance: DEXCHLORPHENIRAMINE MALEATE
     Indication: PREMEDICATION
     Dosage: 1.25 MG, DAILY
     Route: 042
     Dates: start: 20161030, end: 20161030

REACTIONS (2)
  - Condition aggravated [Fatal]
  - Herpes virus infection [Not Recovered/Not Resolved]

NARRATIVE: CASE EVENT DATE: 20161030
